FAERS Safety Report 20964755 (Version 1)
Quarter: 2022Q2

REPORT INFORMATION
  Report Type: Report from Study
  Country: US (occurrence: US)
  Receive Date: 20220615
  Receipt Date: 20220615
  Transmission Date: 20220720
  Serious: Yes (Other)
  Sender: FDA-Public Use
  Company Number: US-ABBVIE-22K-163-4433309-00

PATIENT
  Sex: Male

DRUGS (1)
  1. IMBRUVICA [Suspect]
     Active Substance: IBRUTINIB
     Indication: Chronic lymphocytic leukaemia
     Dosage: MISSED DOSE
     Route: 048
     Dates: start: 20180626, end: 202205

REACTIONS (3)
  - Myocardial infarction [Unknown]
  - Exostosis [Unknown]
  - Blood glucose abnormal [Recovering/Resolving]

NARRATIVE: CASE EVENT DATE: 20210101
